FAERS Safety Report 23666791 (Version 2)
Quarter: 2024Q2

REPORT INFORMATION
  Report Type: Spontaneous
  Country: US (occurrence: US)
  Receive Date: 20240325
  Receipt Date: 20240413
  Transmission Date: 20240716
  Serious: Yes (Death, Hospitalization)
  Sender: FDA-Public Use
  Company Number: US-TEVA-VS-3173452

PATIENT
  Age: 68 Year
  Sex: Male

DRUGS (2)
  1. AZACITIDINE [Suspect]
     Active Substance: AZACITIDINE
     Indication: Acute myeloid leukaemia
     Route: 065
  2. VENETOCLAX [Suspect]
     Active Substance: VENETOCLAX
     Indication: Acute myeloid leukaemia
     Route: 065

REACTIONS (3)
  - Drug ineffective [Fatal]
  - Respiratory distress [Unknown]
  - Pneumonitis [Unknown]
